FAERS Safety Report 7434079-X (Version None)
Quarter: 2011Q2

REPORT INFORMATION
  Report Type: 
  Country: None (occurrence: None)
  Receive Date: 20110421
  Receipt Date: 20110421
  Transmission Date: 20111010
  Serious: Yes (Death)
  Sender: FDA-Public Use
  Company Number: None

PATIENT
  Age: 33 Year
  Sex: Female
  Weight: 104 kg

DRUGS (17)
  1. ZIPRASIDONE HYDROCHLORIDE [Concomitant]
  2. LIOTHYRONINE SODIUM [Concomitant]
  3. OMEPRAZOLE [Concomitant]
  4. GAMUNEX [Suspect]
     Indication: IDIOPATHIC THROMBOCYTOPENIC PURPURA
     Dosage: 100GM X2 DOSES 3 DAYS APART IV DRIP
     Route: 041
     Dates: start: 20100816
  5. GAMUNEX [Suspect]
     Indication: IDIOPATHIC THROMBOCYTOPENIC PURPURA
     Dosage: 100GM X2 DOSES 3 DAYS APART IV DRIP
     Route: 041
     Dates: start: 20100813
  6. APAP TAB [Concomitant]
  7. VANCOMYCIN [Concomitant]
  8. LORATADINE [Concomitant]
  9. CHOLECALCIFEROL [Concomitant]
  10. ALPRAZOLAM [Concomitant]
  11. QUETIAPINE [Concomitant]
  12. HYDROMORPHONE [Concomitant]
  13. DIPHENHYDRAMINE [Concomitant]
  14. PREDNISONE [Concomitant]
  15. MORPHINE [Concomitant]
  16. PROMETHAZINE [Concomitant]
  17. LITHIUM CARBONATE [Concomitant]

REACTIONS (3)
  - TACHYCARDIA [None]
  - PULMONARY EMBOLISM [None]
  - SYNCOPE [None]
